FAERS Safety Report 7545028-8 (Version None)
Quarter: 2011Q2

REPORT INFORMATION
  Report Type: 
  Country: None (occurrence: None)
  Receive Date: 20110614
  Receipt Date: 20110204
  Transmission Date: 20111010
  Serious: Yes (Other)
  Sender: FDA-Public Use
  Company Number: US-BAYER-201027312NA

PATIENT
  Age: 27 Year
  Sex: Female
  Weight: 93.878 kg

DRUGS (13)
  1. CYMBALTA [Concomitant]
     Indication: DEPRESSION
  2. ALBUTEROL SULFATE AUTOHALER [Concomitant]
     Indication: ASTHMA
     Dosage: UNK
     Dates: start: 20050101
  3. NAPROXEN [Concomitant]
     Dosage: UNK
     Dates: start: 20080101, end: 20090101
  4. YASMIN [Suspect]
     Indication: CONTRACEPTION
     Dosage: UNK
     Route: 048
     Dates: start: 20080101, end: 20090701
  5. IMODIUM [Concomitant]
  6. LABETALOL HCL [Concomitant]
     Indication: HYPERTENSION
     Dosage: UNK
     Dates: start: 20080101
  7. IBUPROFEN [Concomitant]
     Dosage: UNK
     Dates: start: 20080101
  8. MOTRIN [Concomitant]
     Dosage: UNK
     Dates: start: 20080101
  9. PHENERGAN HCL [Concomitant]
  10. CYMBALTA [Concomitant]
     Indication: ANXIETY
     Dosage: UNK
     Dates: start: 20050101
  11. IBUPROFEN [Concomitant]
     Dosage: UNK
     Dates: start: 20090101
  12. ACETAMINOPHEN AND OXYCODONE HCL [Concomitant]
  13. MOTRIN [Concomitant]
     Dosage: UNK
     Dates: start: 20090101

REACTIONS (2)
  - GALLBLADDER INJURY [None]
  - CHOLECYSTITIS CHRONIC [None]
